FAERS Safety Report 13453644 (Version 1)
Quarter: 2017Q2

REPORT INFORMATION
  Report Type: Report from Study
  Country: US (occurrence: US)
  Receive Date: 20170418
  Receipt Date: 20170418
  Transmission Date: 20170830
  Serious: Yes (Other)
  Sender: FDA-Public Use
  Company Number: US-GILEAD-2017-0259188

PATIENT
  Age: 58 Year
  Sex: Female

DRUGS (18)
  1. AMBRISENTAN [Suspect]
     Active Substance: AMBRISENTAN
     Indication: PULMONARY HYPERTENSION
     Dosage: 10 MG, QD
     Route: 065
     Dates: start: 20160111
  2. ALBUTEROL                          /00139501/ [Concomitant]
     Active Substance: ALBUTEROL
  3. LEVAQUIN [Suspect]
     Active Substance: LEVOFLOXACIN
     Indication: PRODUCT USED FOR UNKNOWN INDICATION
     Route: 065
  4. DULERA [Concomitant]
     Active Substance: FORMOTEROL FUMARATE DIHYDRATE\MOMETASONE FUROATE
  5. HYDROCHLOROTHIAZIDE. [Concomitant]
     Active Substance: HYDROCHLOROTHIAZIDE
  6. REMODULIN [Suspect]
     Active Substance: TREPROSTINIL
     Indication: PRODUCT USED FOR UNKNOWN INDICATION
     Dosage: UNK
     Route: 065
  7. WARFARIN [Concomitant]
     Active Substance: WARFARIN
  8. LASIX [Concomitant]
     Active Substance: FUROSEMIDE
  9. SERTRALINE [Concomitant]
     Active Substance: SERTRALINE HYDROCHLORIDE
  10. AVAPRO [Concomitant]
     Active Substance: IRBESARTAN
  11. ZITHROMAX [Concomitant]
     Active Substance: AZITHROMYCIN DIHYDRATE
  12. ADCIRCA [Concomitant]
     Active Substance: TADALAFIL
  13. LIOTHYRONINE [Concomitant]
     Active Substance: LIOTHYRONINE
  14. LEVOTHYROXINE. [Concomitant]
     Active Substance: LEVOTHYROXINE
  15. PREDNISOLONE. [Concomitant]
     Active Substance: PREDNISOLONE
  16. GABAPENTIN. [Concomitant]
     Active Substance: GABAPENTIN
  17. DIGOXIN. [Concomitant]
     Active Substance: DIGOXIN
  18. POTASSIUM [Concomitant]
     Active Substance: POTASSIUM

REACTIONS (2)
  - Drug hypersensitivity [Unknown]
  - Dyspnoea [Not Recovered/Not Resolved]

NARRATIVE: CASE EVENT DATE: 201703
